FAERS Safety Report 10239829 (Version 2)
Quarter: 2014Q3

REPORT INFORMATION
  Report Type: Spontaneous
  Country: US (occurrence: None)
  Receive Date: 20140612
  Receipt Date: 20140724
  Transmission Date: 20150326
  Serious: Yes (Hospitalization)
  Sender: FDA-Public Use
  Company Number: 2014UCU075000195

PATIENT
  Age: 53 Year
  Sex: Female
  Weight: 74.84 kg

DRUGS (11)
  1. CIMZIA [Suspect]
     Active Substance: CERTOLIZUMAB PEGOL
     Indication: CROHN^S DISEASE
     Dates: start: 20140226
  2. PREDNISONE. [Suspect]
     Active Substance: PREDNISONE
     Indication: ABDOMINAL PAIN
     Dates: start: 20100823, end: 20101013
  3. ADALIMUMAB [Concomitant]
     Active Substance: ADALIMUMAB
  4. LEVOTHYROXINE [Concomitant]
     Active Substance: LEVOTHYROXINE
  5. VITAMIN B12 NOS [Concomitant]
  6. BUDESONIDE. [Concomitant]
     Active Substance: BUDESONIDE
  7. PEPTO-BISMOL [Concomitant]
     Active Substance: BISMUTH SUBSALICYLATE\CALCIUM CARBONATE
  8. MESALAMINE. [Concomitant]
     Active Substance: MESALAMINE
  9. METRONIDAZOLE. [Concomitant]
     Active Substance: METRONIDAZOLE
  10. CIPROFLOXACIN. [Concomitant]
     Active Substance: CIPROFLOXACIN
  11. PROBIOTICS [Concomitant]
     Active Substance: PROBIOTICS NOS

REACTIONS (2)
  - Abscess intestinal [None]
  - Diverticulitis [None]

NARRATIVE: CASE EVENT DATE: 20140512
